FAERS Safety Report 5673212-7 (Version None)
Quarter: 2008Q2

REPORT INFORMATION
  Report Type: 
  Country: None (occurrence: None)
  Receive Date: 20080219
  Receipt Date: 20071208
  Transmission Date: 20081010
  Serious: No
  Sender: FDA-Public Use
  Company Number: TPA2007A02447

PATIENT
  Sex: Female

DRUGS (1)
  1. ROZEREM [Suspect]
     Indication: CIRCADIAN RHYTHM SLEEP DISORDER
     Dosage: 8 MG, 1 TABLET AT 9 AM, PER ORAL
     Route: 048

REACTIONS (3)
  - HEADACHE [None]
  - MIDDLE INSOMNIA [None]
  - VOMITING [None]
